FAERS Safety Report 5648261-5 (Version None)
Quarter: 2008Q1

REPORT INFORMATION
  Report Type: 
  Country: None (occurrence: None)
  Receive Date: 20080229
  Receipt Date: 20080220
  Transmission Date: 20080703
  Serious: Yes (Other)
  Sender: FDA-Public Use
  Company Number: 2008AP000442

PATIENT
  Age: 33 Year
  Sex: Female

DRUGS (3)
  1. CARBAMAZEPINE [Suspect]
     Indication: EPILEPSY
     Dosage: 400 MG TAB PO TID ; 600 MG TAB PO TID; 600 MG TID
     Route: 048
     Dates: end: 20000101
  2. CARBAMAZEPINE [Suspect]
     Indication: EPILEPSY
     Dosage: 400 MG TAB PO TID ; 600 MG TAB PO TID; 600 MG TID
     Route: 048
  3. CARBAMAZEPINE [Suspect]
     Indication: EPILEPSY
     Dosage: 400 MG TAB PO TID ; 600 MG TAB PO TID; 600 MG TID
     Route: 048
     Dates: start: 19920101

REACTIONS (4)
  - DISTURBANCE IN ATTENTION [None]
  - FALL [None]
  - LOSS OF LIBIDO [None]
  - MUSCLE SPASMS [None]
